FAERS Safety Report 9886284 (Version 3)
Quarter: 2014Q2

REPORT INFORMATION
  Report Type: Spontaneous
  Country: IE (occurrence: IE)
  Receive Date: 20140210
  Receipt Date: 20140407
  Transmission Date: 20141212
  Serious: No
  Sender: FDA-Public Use
  Company Number: US-ASTRAZENECA-2014SE04655

PATIENT
  Age: 163 Day
  Sex: Female
  Weight: 6 kg

DRUGS (17)
  1. SYNAGIS [Suspect]
     Indication: CARDIAC DISORDER
     Route: 030
     Dates: start: 20131014, end: 20131014
  2. SYNAGIS [Suspect]
     Indication: ANTIVIRAL PROPHYLAXIS
     Route: 030
     Dates: start: 20131014, end: 20131014
  3. SYNAGIS [Suspect]
     Indication: CARDIAC DISORDER
     Route: 030
     Dates: start: 201311, end: 201311
  4. SYNAGIS [Suspect]
     Indication: ANTIVIRAL PROPHYLAXIS
     Route: 030
     Dates: start: 201311, end: 201311
  5. SYNAGIS [Suspect]
     Indication: CARDIAC DISORDER
     Route: 030
     Dates: start: 20131205, end: 20131205
  6. SYNAGIS [Suspect]
     Indication: ANTIVIRAL PROPHYLAXIS
     Route: 030
     Dates: start: 20131205, end: 20131205
  7. SYNAGIS [Suspect]
     Indication: CARDIAC DISORDER
     Route: 030
     Dates: start: 20140106, end: 20140106
  8. SYNAGIS [Suspect]
     Indication: ANTIVIRAL PROPHYLAXIS
     Route: 030
     Dates: start: 20140106, end: 20140106
  9. SYNAGIS [Suspect]
     Indication: CARDIAC DISORDER
     Route: 030
     Dates: start: 201402, end: 201402
  10. SYNAGIS [Suspect]
     Indication: ANTIVIRAL PROPHYLAXIS
     Route: 030
     Dates: start: 201402, end: 201402
  11. SYNAGIS [Suspect]
     Indication: CARDIAC DISORDER
     Route: 030
     Dates: start: 201403, end: 201403
  12. SYNAGIS [Suspect]
     Indication: ANTIVIRAL PROPHYLAXIS
     Route: 030
     Dates: start: 201403, end: 201403
  13. SYNAGIS [Suspect]
     Indication: CARDIAC DISORDER
     Dosage: RESTARTED AFTER DISCONTINUED, 92 MG MONTHLY
     Route: 030
  14. SYNAGIS [Suspect]
     Indication: ANTIVIRAL PROPHYLAXIS
     Dosage: RESTARTED AFTER DISCONTINUED, 92 MG MONTHLY
     Route: 030
  15. PROPRANOLOL [Concomitant]
     Indication: CARDIAC DISORDER
     Dosage: 5 MG TDS, CONTINUOUS SINCE BIRTH
     Route: 048
  16. VITAMIN D3 [Concomitant]
     Indication: PRODUCT USED FOR UNKNOWN INDICATION
  17. RANITIDINE [Concomitant]
     Indication: ENTERAL NUTRITION
     Route: 048

REACTIONS (2)
  - Cough [Recovered/Resolved]
  - Rhinorrhoea [Recovered/Resolved]
